FAERS Safety Report 18065349 (Version 1)
Quarter: 2020Q3

REPORT INFORMATION
  Report Type: Spontaneous
  Country: US (occurrence: US)
  Receive Date: 20200723
  Receipt Date: 20200723
  Transmission Date: 20201103
  Serious: Yes (Other)
  Sender: FDA-Public Use
  Company Number: None

PATIENT
  Age: 71 Year
  Sex: Female
  Weight: 53.52 kg

DRUGS (2)
  1. INTRAROSA [Suspect]
     Active Substance: PRASTERONE
  2. INTRAROSA VAGINAL INSERT [Concomitant]
     Dates: start: 20190617, end: 20190920

REACTIONS (5)
  - Skin disorder [None]
  - Alopecia [None]
  - Jaw disorder [None]
  - Blood pressure increased [None]
  - Pain in jaw [None]

NARRATIVE: CASE EVENT DATE: 20190920
